FAERS Safety Report 12420556 (Version 3)
Quarter: 2016Q2

REPORT INFORMATION
  Report Type: Spontaneous
  Country: US (occurrence: US)
  Receive Date: 20160531
  Receipt Date: 20160608
  Transmission Date: 20160815
  Serious: No
  Sender: FDA-Public Use
  Company Number: US-MDT-ADR-2016-00971

PATIENT
  Age: 63 Year
  Sex: Male

DRUGS (6)
  1. PRISTIQ EXTENDED-RELEASE [Suspect]
     Active Substance: DESVENLAFAXINE SUCCINATE
     Route: 065
  2. CLARITIN [Suspect]
     Active Substance: LORATADINE
     Route: 065
  3. ALPRAZOLAM. [Suspect]
     Active Substance: ALPRAZOLAM
     Dosage: 0.5 MG
     Route: 065
  4. LIORESAL [Suspect]
     Active Substance: BACLOFEN
     Dosage: 110.84 MCG/DAY
     Route: 037
     Dates: start: 20160526
  5. MESALAMINE ER [Suspect]
     Active Substance: MESALAMINE
     Dosage: 0.375 GM
     Route: 065
  6. LIORESAL [Suspect]
     Active Substance: BACLOFEN
     Dosage: 110.64 MCG/DAY
     Route: 037
     Dates: start: 20160518, end: 20160526

REACTIONS (10)
  - Muscle spasticity [Recovered/Resolved]
  - Emotional distress [Recovered/Resolved]
  - Asthenia [Recovered/Resolved]
  - Nausea [Recovered/Resolved]
  - Viral infection [Recovered/Resolved]
  - Muscle spasms [Recovered/Resolved]
  - Vomiting [Recovered/Resolved]
  - Gait disturbance [Recovered/Resolved]
  - Incorrect dose administered [Recovered/Resolved]
  - Dizziness [Recovered/Resolved]

NARRATIVE: CASE EVENT DATE: 20160518
